FAERS Safety Report 24362635 (Version 3)
Quarter: 2024Q4

REPORT INFORMATION
  Report Type: Spontaneous
  Country: FR (occurrence: FR)
  Receive Date: 20240925
  Receipt Date: 20241112
  Transmission Date: 20250115
  Serious: No
  Sender: PFIZER
  Company Number: FR-PFIZER INC-202400260574

PATIENT
  Age: 15 Year
  Sex: Male

DRUGS (1)
  1. NGENLA [Suspect]
     Active Substance: SOMATROGON-GHLA
     Dosage: 20 MG, WEEKLY
     Dates: start: 20240613

REACTIONS (3)
  - Device mechanical issue [Unknown]
  - Injection site pain [Unknown]
  - Wrong technique in device usage process [Unknown]
